FAERS Safety Report 6749758-7 (Version None)
Quarter: 2010Q2

REPORT INFORMATION
  Report Type: 
  Country: None (occurrence: None)
  Receive Date: 20100527
  Receipt Date: 20100512
  Transmission Date: 20101027
  Serious: Yes (Other)
  Sender: FDA-Public Use
  Company Number: 2010001924

PATIENT
  Sex: Female

DRUGS (3)
  1. TARCEVA [Suspect]
     Indication: PANCREATIC CARCINOMA
     Dosage: ORAL
     Dates: start: 20090917, end: 20100117
  2. CISPLATIN [Suspect]
     Indication: PANCREATIC CARCINOMA
     Dosage: INTRAVENOUS
     Route: 042
     Dates: start: 20090827, end: 20100408
  3. GEMCITABINE [Suspect]
     Indication: PANCREATIC CARCINOMA
     Dosage: INTRAVENOUS
     Route: 042
     Dates: start: 20090827, end: 20100117

REACTIONS (12)
  - ADENOCARCINOMA PANCREAS [None]
  - BREATH SOUNDS ABNORMAL [None]
  - CHOLESTASIS [None]
  - DECREASED APPETITE [None]
  - LEUKOPENIA [None]
  - MALIGNANT NEOPLASM PROGRESSION [None]
  - METASTASES TO OVARY [None]
  - OVARIAN ADENOMA [None]
  - PATHOGEN RESISTANCE [None]
  - THROMBOCYTOPENIA [None]
  - TUMOUR COMPRESSION [None]
  - WEIGHT DECREASED [None]
